FAERS Safety Report 12161107 (Version 1)
Quarter: 2016Q1

REPORT INFORMATION
  Report Type: Spontaneous
  Country: US (occurrence: US)
  Receive Date: 20160308
  Receipt Date: 20160308
  Transmission Date: 20160526
  Serious: Yes (Hospitalization, Other)
  Sender: FDA-Public Use
  Company Number: US-PFIZER INC-2016135199

PATIENT
  Age: 62 Year
  Sex: Female
  Weight: 108 kg

DRUGS (13)
  1. LYRICA [Suspect]
     Active Substance: PREGABALIN
     Indication: FIBROMYALGIA
  2. LEVOTHYROXINE. [Concomitant]
     Active Substance: LEVOTHYROXINE
     Indication: HYPOTHYROIDISM
     Dosage: 50 UG, 1X/DAY
     Route: 048
     Dates: start: 201601
  3. TEMAZEPAM. [Concomitant]
     Active Substance: TEMAZEPAM
     Indication: INSOMNIA
     Dosage: 15 MG, 1X/DAY, BEFORE BED
  4. LYRICA [Suspect]
     Active Substance: PREGABALIN
     Indication: NEUROPATHY PERIPHERAL
     Dosage: 150 MG, 3X/DAY
     Route: 048
  5. DULOXETINE. [Concomitant]
     Active Substance: DULOXETINE
     Indication: DEPRESSION
     Dosage: 60 MG, 1X/DAY
     Route: 048
  6. XANAX [Concomitant]
     Active Substance: ALPRAZOLAM
     Indication: PAIN
     Dosage: 1 MG, 2X/DAY
  7. LISINOPRIL HCTZ [Concomitant]
     Active Substance: HYDROCHLOROTHIAZIDE\LISINOPRIL
     Indication: HYPERTENSION
     Dosage: 20MG/25MG, 1X/DAY
     Route: 048
  8. DICYCLOMINE [Concomitant]
     Active Substance: DICYCLOMINE HYDROCHLORIDE
     Indication: GASTROINTESTINAL PAIN
     Dosage: 20 MG, AS NEEDED
     Route: 048
  9. PHENTERMINE. [Concomitant]
     Active Substance: PHENTERMINE
     Indication: DECREASED APPETITE
     Dosage: 37.5 MG, 1X/DAY
     Route: 048
  10. CRESTOR [Concomitant]
     Active Substance: ROSUVASTATIN CALCIUM
     Indication: BLOOD CHOLESTEROL INCREASED
     Dosage: 20 MG, 1X/DAY
     Route: 048
  11. VALTREX [Concomitant]
     Active Substance: VALACYCLOVIR HYDROCHLORIDE
     Indication: HERPES VIRUS INFECTION
     Dosage: 500 MG, 1X/DAY
     Route: 048
  12. PERCOCET [Concomitant]
     Active Substance: ACETAMINOPHEN\OXYCODONE HYDROCHLORIDE
     Indication: PAIN
     Dosage: 10/325 MG, AS NEEDED (UP TO 3X/DAY)
     Dates: start: 201501
  13. LINZESS [Concomitant]
     Active Substance: LINACLOTIDE
     Indication: IRRITABLE BOWEL SYNDROME
     Dosage: UNK, AS NEEDED
     Dates: start: 2014

REACTIONS (10)
  - Mental disorder [Recovered/Resolved]
  - Weight increased [Not Recovered/Not Resolved]
  - Fatigue [Not Recovered/Not Resolved]
  - Hypothyroidism [Unknown]
  - Diverticulitis [Not Recovered/Not Resolved]
  - Fall [Unknown]
  - Asthenia [Unknown]
  - Hyperaesthesia [Unknown]
  - Glaucoma [Unknown]
  - Lower limb fracture [Unknown]

NARRATIVE: CASE EVENT DATE: 2014
